FAERS Safety Report 7425328-2 (Version None)
Quarter: 2011Q2

REPORT INFORMATION
  Report Type: 
  Country: None (occurrence: None)
  Receive Date: 20110420
  Receipt Date: 20110407
  Transmission Date: 20111010
  Serious: Yes (Hospitalization)
  Sender: FDA-Public Use
  Company Number: PHHY2011US29483

PATIENT
  Sex: Female

DRUGS (1)
  1. RECLAST [Suspect]
     Dosage: 5 MG/100 ML ONCE YEARLY
     Dates: start: 20100901

REACTIONS (2)
  - CEREBROVASCULAR ACCIDENT [None]
  - DIPLOPIA [None]
